FAERS Safety Report 6876569-4 (Version None)
Quarter: 2010Q3

REPORT INFORMATION
  Report Type: 
  Country: None (occurrence: None)
  Receive Date: 20100727
  Receipt Date: 20100715
  Transmission Date: 20110219
  Serious: Yes (Disabling)
  Sender: FDA-Public Use
  Company Number: US-MYLANLABS-2009S1020653

PATIENT
  Age: 30 Year
  Sex: Male
  Weight: 81.65 kg

DRUGS (21)
  1. TEMAZEPAM [Suspect]
     Indication: INSOMNIA
     Route: 048
     Dates: start: 20040303, end: 20040817
  2. TRAZODONE [Suspect]
     Indication: INSOMNIA
     Route: 048
     Dates: start: 20040226, end: 20040401
  3. TRAZODONE [Suspect]
     Indication: ANXIETY
     Route: 048
     Dates: start: 20040226, end: 20040401
  4. TEMAZEPAM [Suspect]
     Indication: INSOMNIA
     Route: 048
     Dates: start: 20040324
  5. TEMAZEPAM [Suspect]
     Indication: ANXIETY
     Route: 048
     Dates: start: 20040324
  6. TEMAZEPAM [Suspect]
     Route: 048
     Dates: start: 20040709
  7. TEMAZEPAM [Suspect]
     Route: 048
     Dates: start: 20040709
  8. TEMAZEPAM [Suspect]
     Route: 048
     Dates: start: 20040817
  9. TEMAZEPAM [Suspect]
     Route: 048
     Dates: start: 20040817
  10. TEMAZEPAM [Suspect]
     Dosage: PRN
     Route: 048
     Dates: start: 20090303
  11. TEMAZEPAM [Suspect]
     Dosage: PRN
     Route: 048
     Dates: start: 20090303
  12. TRAZODONE [Suspect]
     Route: 048
     Dates: start: 20040226
  13. TRAZODONE [Suspect]
     Route: 048
     Dates: start: 20040226
  14. TRAZODONE [Suspect]
     Route: 048
     Dates: start: 20040226
  15. TRAZODONE [Suspect]
     Route: 048
     Dates: start: 20040226
  16. TRAZODONE [Suspect]
     Route: 048
     Dates: start: 20040318
  17. TRAZODONE [Suspect]
     Route: 048
     Dates: start: 20040318
  18. AMBIEN [Concomitant]
     Dates: start: 20040212, end: 20040301
  19. LEXAPRO [Concomitant]
     Dates: start: 20040709
  20. NAPROXEN [Concomitant]
     Dates: start: 20041120
  21. HYDROCODONE BITARTRATE AND ACETAMINOPHEN [Concomitant]
     Dates: start: 20041121

REACTIONS (9)
  - AMNESIA [None]
  - ANXIETY [None]
  - DRUG INEFFECTIVE [None]
  - ERECTILE DYSFUNCTION [None]
  - IMPRISONMENT [None]
  - MEMORY IMPAIRMENT [None]
  - PALPITATIONS [None]
  - SEXUAL ABUSE [None]
  - TACHYCARDIA [None]
